FAERS Safety Report 6149251-9 (Version None)
Quarter: 2009Q2

REPORT INFORMATION
  Report Type: 
  Country: None (occurrence: None)
  Receive Date: 20090406
  Receipt Date: 20090406
  Transmission Date: 20091009
  Serious: Yes (Life-Threatening, Hospitalization)
  Sender: FDA-Public Use
  Company Number: None

PATIENT
  Age: 63 Year
  Sex: Female
  Weight: 66.2252 kg

DRUGS (14)
  1. VERENICLINE STARTINGDOSE PACK [Suspect]
     Indication: SMOKING CESSATION THERAPY
  2. INSULIN [Concomitant]
  3. CITALOPRAM HYDROBROMIDE [Concomitant]
  4. ATORVASTATIN [Concomitant]
  5. CLOPIDOGREL [Concomitant]
  6. ASPIRIN [Concomitant]
  7. LEVOTHYROXINE SODIUM [Concomitant]
  8. FUROSEMIDE [Concomitant]
  9. IRBESARTAN [Concomitant]
  10. CALCITRIOL [Concomitant]
  11. PANTOPRAZOLE SODIUM [Concomitant]
  12. METOPROLOL TARTRATE [Concomitant]
  13. MISOPROSTOL [Concomitant]
  14. SUCRALFATE [Concomitant]

REACTIONS (1)
  - DIABETIC KETOACIDOSIS [None]
